FAERS Safety Report 6218555-3 (Version None)
Quarter: 2009Q2

REPORT INFORMATION
  Report Type: 
  Country: None (occurrence: None)
  Receive Date: 20090608
  Receipt Date: 20090601
  Transmission Date: 20091009
  Serious: Yes (Death, Other)
  Sender: FDA-Public Use
  Company Number: PHHO2009TH06771

PATIENT
  Sex: Female
  Weight: 46 kg

DRUGS (2)
  1. RAD 666 RAD+TAB [Suspect]
     Indication: RENAL CELL CARCINOMA
     Dosage: 5 MG
     Route: 048
     Dates: start: 20090518, end: 20090529
  2. BEVACIZUMAB [Suspect]
     Indication: RENAL CELL CARCINOMA
     Dosage: 10MG/KG DAILY
     Route: 042
     Dates: start: 20090518

REACTIONS (3)
  - HYPOPHAGIA [None]
  - HYPOVOLAEMIC SHOCK [None]
  - MUCOSAL INFLAMMATION [None]
